FAERS Safety Report 12613841 (Version 2)
Quarter: 2016Q3

REPORT INFORMATION
  Report Type: Spontaneous
  Country: US (occurrence: US)
  Receive Date: 20160802
  Receipt Date: 20160825
  Transmission Date: 20161109
  Serious: No
  Sender: FDA-Public Use
  Company Number: US-PFIZER INC-2016348647

PATIENT
  Age: 70 Year
  Sex: Male
  Weight: 100 kg

DRUGS (3)
  1. SUTENT [Suspect]
     Active Substance: SUNITINIB MALATE
     Dosage: 50 MG, UNK (DAILY 14 DAYS, 7 DAYS OFF)
     Route: 048
     Dates: start: 20160815
  2. SUTENT [Suspect]
     Active Substance: SUNITINIB MALATE
     Indication: RENAL CELL CARCINOMA
     Dosage: 50 MG, UNK (DAY 1-14 Q21 DAYS)
     Route: 048
     Dates: start: 20160623
  3. SUTENT [Suspect]
     Active Substance: SUNITINIB MALATE
     Dosage: 50 MG, UNK (14 DAYS, 7 DAYS (ILLEGIBLE))
     Route: 048
     Dates: start: 20160817

REACTIONS (7)
  - Oral discomfort [Unknown]
  - Dysgeusia [Unknown]
  - Oral pain [Unknown]
  - Abdominal pain upper [Unknown]
  - Toothache [Unknown]
  - Diarrhoea [Unknown]
  - White blood cell count decreased [Unknown]

NARRATIVE: CASE EVENT DATE: 2016
